FAERS Safety Report 9526339 (Version 1)
Quarter: 2013Q1

REPORT INFORMATION
  Report Type: Spontaneous
  Country: US (occurrence: None)
  Receive Date: 20130305
  Receipt Date: 20130305
  Transmission Date: 20140127
  Serious: Yes (Hospitalization, Other)
  Sender: FDA-Public Use
  Company Number: 163-21880-12030876

PATIENT
  Age: 65 Year
  Sex: Female

DRUGS (11)
  1. REVLIMID [Suspect]
     Indication: PLASMA CELL MYELOMA
     Route: 048
     Dates: start: 200904, end: 200909
  2. VELCADE (BORTEZOMIB) [Concomitant]
  3. DEXAMETHASONE (DEXAMETHASONE) [Concomitant]
  4. GABAPENTIN (GABAPENTIN) [Concomitant]
  5. ZOMETA (ZOLEDRONC ACID) [Concomitant]
  6. BIAXIN (CLARITHROMYCIN) [Concomitant]
  7. VALACYCLOVIR (VALACICLOVIR HYDROCHLORIDE) [Concomitant]
  8. PENICILLIN VK (PHENOXYMETHYLPENICILLIN POTASSIUM) [Concomitant]
  9. LASIX (FUROSEMIDE) [Concomitant]
  10. NEURONTIN (GABAPENTIN) [Concomitant]
  11. TYLENOL WITH CODEINE#3 (SOLPADEINE) [Concomitant]

REACTIONS (5)
  - Pneumonia streptococcal [None]
  - Neutropenia [None]
  - Thrombocytopenia [None]
  - Clostridium difficile colitis [None]
  - Escherichia bacteraemia [None]
